FAERS Safety Report 5527926-X (Version None)
Quarter: 2007Q4

REPORT INFORMATION
  Report Type: 
  Country: None (occurrence: None)
  Receive Date: 20071123
  Receipt Date: 20071112
  Transmission Date: 20080405
  Serious: Yes (Hospitalization, Other)
  Sender: FDA-Public Use
  Company Number: GXKR2007FR09692

PATIENT
  Age: 49 Year
  Sex: Male

DRUGS (3)
  1. MYCOPHENOLATE MOFETIL (NGX) (MYCQPHENOLATE MOFETIL) [Suspect]
     Indication: IMMUNOSUPPRESSANT DRUG THERAPY
  2. PREDNISONE [Suspect]
     Indication: IMMUNOSUPPRESSANT DRUG THERAPY
  3. TACROLIMUS [Suspect]
     Indication: IMMUNOSUPPRESSANT DRUG THERAPY

REACTIONS (14)
  - CELLULITIS [None]
  - CRYPTOCOCCOSIS [None]
  - DISEASE RECURRENCE [None]
  - DRUG WITHDRAWAL SYNDROME [None]
  - HAEMODIALYSIS [None]
  - IMMUNE RECONSTITUTION SYNDROME [None]
  - KAPOSI'S SARCOMA [None]
  - KIDNEY TRANSPLANT REJECTION [None]
  - LYMPHADENITIS [None]
  - LYMPHADENOPATHY [None]
  - OPPORTUNISTIC INFECTION [None]
  - RENAL FAILURE ACUTE [None]
  - SEPSIS [None]
  - THROMBOTIC MICROANGIOPATHY [None]
